FAERS Safety Report 5751646-X (Version None)
Quarter: 2008Q2

REPORT INFORMATION
  Report Type: 
  Country: None (occurrence: None)
  Receive Date: 20080528
  Receipt Date: 20080521
  Transmission Date: 20081010
  Serious: Yes (Other)
  Sender: FDA-Public Use
  Company Number: PHHY2008IT08631

PATIENT
  Sex: Female

DRUGS (1)
  1. ZOMETA [Suspect]
     Dosage: UNK
     Route: 042
     Dates: start: 20030301, end: 20060201

REACTIONS (7)
  - JAW OPERATION [None]
  - LIMB DISCOMFORT [None]
  - MASTICATION DISORDER [None]
  - OSTEOMYELITIS [None]
  - SCAR [None]
  - SPEECH DISORDER [None]
  - SWELLING [None]
